FAERS Safety Report 18117631 (Version 2)
Quarter: 2020Q3

REPORT INFORMATION
  Report Type: Other
  Country: JP (occurrence: JP)
  Receive Date: 20200806
  Receipt Date: 20200806
  Transmission Date: 20201103
  Serious: Yes (Death, Other)
  Sender: FDA-Public Use
  Company Number: JP-ROCHE-2652089

PATIENT
  Age: 71 Year
  Sex: Female

DRUGS (3)
  1. TEGAFUR GIMERACIL AND OTERACIL POTASSIUM [Concomitant]
     Active Substance: GIMERACIL\OTERACIL\TEGAFUR
     Indication: ADENOCARCINOMA OF COLON
     Dosage: DOSAGE IS UNCERTAIN.
     Route: 048
     Dates: start: 201905, end: 2019
  2. AVASTIN [Suspect]
     Active Substance: BEVACIZUMAB
     Indication: ADENOCARCINOMA OF COLON
     Dosage: DOSAGE IS UNCERTAIN.
     Route: 042
     Dates: start: 201905, end: 2019
  3. IRINOTECAN HYDROCHLORIDE HYDRATE [Concomitant]
     Active Substance: IRINOTECAN HYDROCHLORIDE
     Indication: ADENOCARCINOMA OF COLON
     Dosage: DOSAGE IS UNCERTAIN.
     Route: 041
     Dates: start: 201905, end: 2019

REACTIONS (3)
  - Colon cancer [Fatal]
  - Sepsis [Unknown]
  - Urinary tract infection [Unknown]

NARRATIVE: CASE EVENT DATE: 201910
